FAERS Safety Report 6989986-9 (Version None)
Quarter: 2010Q3

REPORT INFORMATION
  Report Type: 
  Country: None (occurrence: None)
  Receive Date: 20100916
  Receipt Date: 20100412
  Transmission Date: 20110219
  Serious: Yes (Disabling)
  Sender: FDA-Public Use
  Company Number: GB-PFIZER INC-2010045566

PATIENT
  Age: 59 Year
  Sex: Male

DRUGS (4)
  1. PREGABALIN [Suspect]
     Indication: NEURALGIA
     Dosage: UNK
     Route: 048
     Dates: start: 20100130, end: 20100206
  2. AMLODIPINE [Concomitant]
     Dosage: UNK
  3. GABAPENTIN [Concomitant]
     Dosage: UNK
  4. SIMVASTATIN [Concomitant]
     Dosage: UNK

REACTIONS (6)
  - BLISTER [None]
  - ECZEMA [None]
  - LETHARGY [None]
  - RASH ERYTHEMATOUS [None]
  - URTICARIA [None]
  - WITHDRAWAL SYNDROME [None]
